FAERS Safety Report 9161103 (Version 1)
Quarter: 2013Q1

REPORT INFORMATION
  Report Type: Spontaneous
  Country: CZ (occurrence: CZ)
  Receive Date: 20130313
  Receipt Date: 20130313
  Transmission Date: 20140127
  Serious: Yes (Life-Threatening, Hospitalization)
  Sender: FDA-Public Use
  Company Number: PHHY2013CZ024391

PATIENT
  Age: 26 Year
  Sex: Male
  Weight: 80 kg

DRUGS (1)
  1. OSPEN [Suspect]
     Indication: BACTERIAL INFECTION
     Dosage: 1000 MG, Q8H
     Route: 048
     Dates: start: 20130124, end: 20130131

REACTIONS (9)
  - Chest discomfort [Unknown]
  - Sensation of foreign body [Unknown]
  - Oedema peripheral [Unknown]
  - Drug eruption [Unknown]
  - Joint swelling [Unknown]
  - Erythema [Unknown]
  - Urticaria [Unknown]
  - Mechanical urticaria [Unknown]
  - Oedema peripheral [Unknown]
